FAERS Safety Report 5828704-4 (Version None)
Quarter: 2008Q3

REPORT INFORMATION
  Report Type: 
  Country: None (occurrence: None)
  Receive Date: 20080731
  Receipt Date: 20080718
  Transmission Date: 20090109
  Serious: Yes (Death, Hospitalization)
  Sender: FDA-Public Use
  Company Number: JP-AMGEN-US269134

PATIENT
  Sex: Female
  Weight: 34 kg

DRUGS (4)
  1. ENBREL [Suspect]
     Indication: RHEUMATOID ARTHRITIS
     Route: 058
     Dates: start: 20070109, end: 20080226
  2. HYPEN [Concomitant]
     Route: 048
     Dates: start: 20071121
  3. VOLTAREN [Concomitant]
     Route: 048
     Dates: start: 20030126, end: 20071120
  4. PREDONINE [Concomitant]
     Indication: RHEUMATOID ARTHRITIS
     Route: 048
     Dates: start: 20020801

REACTIONS (7)
  - APHTHOUS STOMATITIS [None]
  - ASTHENIA [None]
  - HYPOPHAGIA [None]
  - INTERSTITIAL LUNG DISEASE [None]
  - NAUSEA [None]
  - RESPIRATORY FAILURE [None]
  - STOMATITIS [None]
